FAERS Safety Report 10421778 (Version 2)
Quarter: 2014Q4

REPORT INFORMATION
  Report Type: Other
  Country: US (occurrence: US)
  Receive Date: 20140901
  Receipt Date: 20141003
  Transmission Date: 20150528
  Serious: Yes (Hospitalization)
  Sender: FDA-Public Use
  Company Number: US-SHIRE-US201405314

PATIENT
  Age: 31 Year
  Sex: Female
  Weight: 108.84 kg

DRUGS (4)
  1. KALBITOR [Concomitant]
     Active Substance: ECALLANTIDE
     Indication: HEREDITARY ANGIOEDEMA
  2. CINRYZE [Suspect]
     Active Substance: HUMAN C1-ESTERASE INHIBITOR
     Indication: HEREDITARY ANGIOEDEMA
     Dosage: 1500 UNITS, OTHER (2X PER WK)
     Route: 042
     Dates: start: 20110428
  3. KALBITOR [Concomitant]
     Active Substance: ECALLANTIDE
     Indication: PHARYNGEAL OEDEMA
     Dosage: UNK, UNKNOWN
     Route: 065
     Dates: start: 20140802
  4. CINRYZE [Suspect]
     Active Substance: HUMAN C1-ESTERASE INHIBITOR
     Indication: PROPHYLAXIS
     Dosage: 1000 UNITS, OTHER, TWICE WEEKLY
     Route: 042

REACTIONS (6)
  - Pharyngeal oedema [Unknown]
  - Local swelling [Unknown]
  - Drug dose omission [Unknown]
  - Prescribed overdose [Not Recovered/Not Resolved]
  - Condition aggravated [Unknown]
  - Hereditary angioedema [Unknown]

NARRATIVE: CASE EVENT DATE: 20110428
